FAERS Safety Report 9165202 (Version 2)
Quarter: 2013Q2

REPORT INFORMATION
  Report Type: Spontaneous
  Country: US (occurrence: US)
  Receive Date: 20130315
  Receipt Date: 20130403
  Transmission Date: 20140414
  Serious: No
  Sender: FDA-Public Use
  Company Number: US-BAYER-2013-018700

PATIENT
  Age: 40 Year
  Sex: Male

DRUGS (1)
  1. CIPRO [Suspect]
     Indication: ANIMAL BITE
     Dosage: 500 MG, BID
     Route: 048
     Dates: start: 20121023, end: 20121103

REACTIONS (10)
  - Ear discomfort [None]
  - Dizziness [None]
  - Balance disorder [None]
  - Anxiety [None]
  - Tinnitus [None]
  - Heart rate increased [None]
  - Headache [None]
  - Disorientation [None]
  - Ocular discomfort [None]
  - Paraesthesia [None]
